FAERS Safety Report 9574960 (Version 1)
Quarter: 2013Q4

REPORT INFORMATION
  Report Type: Spontaneous
  Country: GB (occurrence: GB)
  Receive Date: 20131001
  Receipt Date: 20131001
  Transmission Date: 20140711
  Serious: Yes (Other)
  Sender: FDA-Public Use
  Company Number: GB-MYLANLABS-2013S1021088

PATIENT
  Age: 29 Year
  Sex: Female

DRUGS (6)
  1. BUPIVACAINE [Suspect]
     Indication: EPIDURAL ANAESTHESIA
     Dosage: 1ML OF BUPIVACAINE 0.25%
     Route: 008
  2. BUPIVACAINE [Suspect]
     Indication: EPIDURAL ANAESTHESIA
     Dosage: TWO TOP-UPS OF 15ML OF BUPIVACAINE 0.1%
     Route: 008
  3. BUPIVACAINE [Suspect]
     Indication: EPIDURAL ANAESTHESIA
     Dosage: FURTHER TOP-OP OF BUPIVACAINE 0.25%
     Route: 008
  4. FENTANYL [Suspect]
     Indication: EPIDURAL ANAESTHESIA
     Dosage: 15G
     Route: 008
  5. FENTANYL [Suspect]
     Indication: EPIDURAL ANAESTHESIA
     Dosage: TWO TOP-UPS OF 2 G/ML
     Route: 008
  6. SYNTOCINON [Concomitant]
     Route: 050

REACTIONS (2)
  - Horner^s syndrome [Recovered/Resolved]
  - Exposure during pregnancy [Recovered/Resolved]
